FAERS Safety Report 7700261-7 (Version None)
Quarter: 2011Q3

REPORT INFORMATION
  Report Type: 
  Country: None (occurrence: None)
  Receive Date: 20110816
  Receipt Date: 20110727
  Transmission Date: 20111222
  Serious: Yes (Hospitalization, Other)
  Sender: FDA-Public Use
  Company Number: JPI-P-016039

PATIENT
  Age: 52 Year
  Sex: Female

DRUGS (11)
  1. XYREM [Suspect]
     Indication: SLEEP APNOEA SYNDROME
     Dosage: (2 IN 1 D),ORAL ; (5 GM FIRST DOSE/2 GM SECOND DOSE),ORAL
     Route: 048
     Dates: start: 20040511
  2. XYREM [Suspect]
     Indication: INSOMNIA
     Dosage: (2 IN 1 D),ORAL ; (5 GM FIRST DOSE/2 GM SECOND DOSE),ORAL
     Route: 048
     Dates: start: 20040511
  3. ESOMEPRAZOLE MAGNESIUM [Concomitant]
  4. SIMAVASTATIN [Concomitant]
  5. POLYETHYLENE GLYCOL [Concomitant]
  6. VENLAFAXINE HYDROCHLORIDE [Concomitant]
  7. LISINOPRIL [Concomitant]
  8. MELOXICAM [Concomitant]
  9. CALCIUM SOFT CHEW [Concomitant]
  10. CYCLOBENZAPRINE HYDROCHLORIDE [Concomitant]
  11. METFORMIN [Concomitant]

REACTIONS (1)
  - NERVE COMPRESSION [None]
